FAERS Safety Report 7425346-4 (Version None)
Quarter: 2011Q2

REPORT INFORMATION
  Report Type: 
  Country: None (occurrence: None)
  Receive Date: 20110420
  Receipt Date: 20110408
  Transmission Date: 20111010
  Serious: Yes (Hospitalization)
  Sender: FDA-Public Use
  Company Number: PHHY2011US29983

PATIENT
  Sex: Female

DRUGS (4)
  1. REVLIMID [Suspect]
     Indication: MULTIPLE MYELOMA
     Dosage: 15 MG, UNK
     Route: 048
     Dates: start: 20090401
  2. FOSAMAX [Suspect]
     Dosage: UNK
  3. ZOMETA [Suspect]
     Dosage: UNK
  4. REVLIMID [Suspect]
     Dosage: 10 MG, UNK
     Route: 048
     Dates: start: 20101201

REACTIONS (5)
  - NEUTROPENIA [None]
  - THROMBOCYTOPENIA [None]
  - PAIN IN JAW [None]
  - IMPAIRED HEALING [None]
  - OSTEONECROSIS OF JAW [None]
